FAERS Safety Report 5968444-4 (Version None)
Quarter: 2008Q4

REPORT INFORMATION
  Report Type: 
  Country: None (occurrence: None)
  Receive Date: 20081119
  Receipt Date: 20080728
  Transmission Date: 20090506
  Serious: No
  Sender: FDA-Public Use
  Company Number: WAES 0805USA03780

PATIENT
  Age: 79 Year
  Sex: Male
  Weight: 84.369 kg

DRUGS (11)
  1. JANUVIA [Suspect]
     Indication: TYPE 2 DIABETES MELLITUS
     Dosage: 100 MG/DAILY/PO
     Route: 048
     Dates: start: 20080512
  2. AMBIEN [Concomitant]
  3. CARDIZEM [Concomitant]
  4. COUMADIN [Concomitant]
  5. COZAAR [Concomitant]
  6. POTASSIUM CHLORIDE [Concomitant]
  7. LASIX [Concomitant]
  8. SYNTHROID [Concomitant]
  9. DIGOXIN [Concomitant]
  10. GLIPIZIDE [Concomitant]
  11. SIMVASTATIN [Concomitant]

REACTIONS (2)
  - HAEMATURIA [None]
  - URETHRAL HAEMORRHAGE [None]
